FAERS Safety Report 7489285-5 (Version None)
Quarter: 2011Q2

REPORT INFORMATION
  Report Type: 
  Country: None (occurrence: None)
  Receive Date: 20110518
  Receipt Date: 20110513
  Transmission Date: 20111010
  Serious: Yes (Life-Threatening, Hospitalization, Other)
  Sender: FDA-Public Use
  Company Number: DE-PFIZER INC-2011055116

PATIENT
  Age: 67 Year
  Sex: Female
  Weight: 93 kg

DRUGS (11)
  1. IBUPROFEN [Suspect]
     Indication: SPINAL OSTEOARTHRITIS
     Dosage: UNK, AS NEEDED
     Route: 048
     Dates: end: 20101102
  2. IBUPROFEN [Suspect]
     Dosage: 400 MG, SINGLE
     Route: 048
     Dates: start: 20101103, end: 20101103
  3. AMLODIPINE BESYLATE [Suspect]
     Dosage: 5 MG, UNK
     Route: 048
     Dates: start: 20101105, end: 20101109
  4. AMIODARONE HYDROCHLORIDE [Suspect]
     Indication: ATRIAL FIBRILLATION
     Dosage: 200 TO 600MG DAILY
     Route: 048
     Dates: start: 20101103, end: 20101109
  5. RAMIPRIL [Suspect]
     Dosage: 2.5 MG, 1X/DAY
     Route: 048
     Dates: start: 20101118, end: 20101129
  6. IBUPROFEN [Suspect]
     Indication: SPINAL OSTEOARTHRITIS
     Dosage: 400 MG, 1X/DAY
     Route: 048
     Dates: start: 20101103, end: 20101103
  7. DICLOFENAC SODIUM [Suspect]
     Indication: SPINAL OSTEOARTHRITIS
     Dosage: UNK, AS NEEDED
     Route: 048
     Dates: end: 20101102
  8. RAMIPRIL [Suspect]
     Dosage: UNK
     Route: 048
     Dates: start: 20101105
  9. RAMIPRIL [Suspect]
     Indication: PRODUCT USED FOR UNKNOWN INDICATION
     Dosage: 2.5 MG, 2X/DAY
     Route: 048
     Dates: start: 20101105, end: 20101109
  10. RAMIPRIL [Suspect]
     Dosage: 2.5 MG, 2X/DAY
     Route: 048
     Dates: start: 20100923, end: 20101102
  11. AMLODIPINE BESYLATE [Suspect]
     Indication: HYPERTENSION
     Dosage: 5-10 MG/DAY
     Route: 048
     Dates: start: 20100923, end: 20101103

REACTIONS (5)
  - CHEST PAIN [None]
  - TUBULOINTERSTITIAL NEPHRITIS [None]
  - RENAL FAILURE CHRONIC [None]
  - BLOOD CREATININE INCREASED [None]
  - BLOOD UREA INCREASED [None]
